FAERS Safety Report 4864668-8 (Version None)
Quarter: 2005Q4

REPORT INFORMATION
  Report Type: 
  Country: None (occurrence: None)
  Receive Date: 20051222
  Receipt Date: 20051215
  Transmission Date: 20060501
  Serious: Yes (Hospitalization)
  Sender: FDA-Public Use
  Company Number: AU-MERCK-0512AUS00319

PATIENT
  Sex: Male

DRUGS (4)
  1. ZETIA [Suspect]
     Indication: METABOLIC DISORDER
     Route: 048
     Dates: start: 20050228, end: 20050101
  2. ZETIA [Suspect]
     Route: 048
     Dates: start: 20050101
  3. ZOCOR [Concomitant]
     Indication: METABOLIC DISORDER
     Route: 048
     Dates: start: 20030915, end: 20050101
  4. ZOCOR [Concomitant]
     Route: 048
     Dates: start: 20050101

REACTIONS (6)
  - ARTHRALGIA [None]
  - INSOMNIA [None]
  - MEDICATION ERROR [None]
  - MUSCLE SPASMS [None]
  - MYALGIA [None]
  - PARAESTHESIA [None]
